FAERS Safety Report 8457743-2 (Version None)
Quarter: 2012Q2

REPORT INFORMATION
  Report Type: 
  Country: None (occurrence: None)
  Receive Date: 20120618
  Receipt Date: 20120618
  Transmission Date: 20120825
  Serious: Yes (Disabling, Other)
  Sender: FDA-Public Use
  Company Number: None

PATIENT
  Age: 46 Year
  Sex: Male
  Weight: 71.6683 kg

DRUGS (1)
  1. EXFORGE HCT [Suspect]

REACTIONS (1)
  - RENAL CANCER [None]
